FAERS Safety Report 23703421 (Version 1)
Quarter: 2024Q2

REPORT INFORMATION
  Report Type: Report from Study
  Country: CA (occurrence: CA)
  Receive Date: 20240403
  Receipt Date: 20240403
  Transmission Date: 20240716
  Serious: Yes (Other)
  Sender: FDA-Public Use
  Company Number: CA-ABBVIE-5703828

PATIENT
  Sex: Male

DRUGS (1)
  1. SKYRIZI [Suspect]
     Active Substance: RISANKIZUMAB-RZAA
     Indication: Crohn^s disease
     Route: 058
     Dates: start: 20231208

REACTIONS (5)
  - Gastrointestinal disorder [Unknown]
  - Volvulus [Unknown]
  - Frequent bowel movements [Unknown]
  - Vomiting [Unknown]
  - Mobility decreased [Unknown]

NARRATIVE: CASE EVENT DATE: 20240331
